FAERS Safety Report 6946669-9 (Version None)
Quarter: 2010Q3

REPORT INFORMATION
  Report Type: 
  Country: None (occurrence: None)
  Receive Date: 20100827
  Receipt Date: 20090804
  Transmission Date: 20110219
  Serious: No
  Sender: FDA-Public Use
  Company Number: US-ABBOTT-09P-163-0589770-00

PATIENT
  Sex: Female
  Weight: 79.45 kg

DRUGS (4)
  1. NIASPAN [Suspect]
     Indication: BLOOD CHOLESTEROL INCREASED
     Dates: start: 20090725
  2. LEVOTHYROXINE [Concomitant]
     Indication: HYPOTHYROIDISM
  3. NORVASC [Concomitant]
     Indication: HYPERTENSION
  4. MAXZIDE [Concomitant]
     Indication: HYPERTENSION
     Dosage: 50/75MG

REACTIONS (4)
  - ABNORMAL DREAMS [None]
  - FLUSHING [None]
  - JOINT SWELLING [None]
  - WEIGHT INCREASED [None]
